FAERS Safety Report 8317049-9 (Version None)
Quarter: 2012Q2

REPORT INFORMATION
  Report Type: 
  Country: None (occurrence: None)
  Receive Date: 20120427
  Receipt Date: 20120420
  Transmission Date: 20120825
  Serious: Yes (Other)
  Sender: FDA-Public Use
  Company Number: BR-PFIZER INC-2012090278

PATIENT
  Age: 65 Year
  Sex: Male
  Weight: 68 kg

DRUGS (10)
  1. SUTENT [Suspect]
     Indication: RENAL CANCER
     Dosage: 50 MG, 1X/DAY
     Route: 048
  2. ALPRAZOLAM [Concomitant]
  3. HYDROMORPHONE HCL [Concomitant]
     Dosage: 8 MG, 1X/DAY
  4. VI-FERRIN [Concomitant]
  5. VENLIFT [Concomitant]
  6. PLAKETAR [Concomitant]
  7. JANUVIA [Concomitant]
     Dosage: 100 MG, 1X/DAY
  8. CIPRO [Concomitant]
     Dosage: 500 MG, 2X/DAY
  9. PANTOPRAZOLE [Concomitant]
     Dosage: 40 MG, 1X/DAY
  10. CENTRUM [Concomitant]

REACTIONS (7)
  - WEIGHT DECREASED [None]
  - RENAL CANCER [None]
  - AGEUSIA [None]
  - SUICIDAL IDEATION [None]
  - TONGUE DISORDER [None]
  - DECREASED APPETITE [None]
  - DISEASE PROGRESSION [None]
